FAERS Safety Report 6056650-2 (Version None)
Quarter: 2009Q1

REPORT INFORMATION
  Report Type: 
  Country: None (occurrence: None)
  Receive Date: 20090129
  Receipt Date: 20090119
  Transmission Date: 20090719
  Serious: Yes (Hospitalization)
  Sender: FDA-Public Use
  Company Number: FR-PFIZER INC-2009158831

PATIENT
  Sex: Male

DRUGS (11)
  1. TAHOR [Suspect]
     Route: 048
     Dates: end: 20081201
  2. RAMIPRIL [Suspect]
     Indication: HYPERTENSION
     Route: 048
     Dates: start: 20081121, end: 20081209
  3. BUDESONIDE [Concomitant]
     Indication: ASTHMA
     Route: 049
     Dates: end: 20081204
  4. KARDEGIC [Concomitant]
  5. NEXIUM [Concomitant]
  6. SPIRIVA [Concomitant]
  7. FORADIL [Concomitant]
  8. PLAVIX [Concomitant]
     Dates: start: 20081105
  9. IVABRADINE [Concomitant]
     Dates: start: 20081105
  10. FOZITEC [Concomitant]
     Dates: end: 20081121
  11. TRIATEC [Concomitant]
     Dosage: UNK
     Dates: start: 20081121, end: 20081209

REACTIONS (1)
  - CHOLESTASIS [None]
